FAERS Safety Report 8853162 (Version 3)
Quarter: 2012Q4

REPORT INFORMATION
  Report Type: 
  Country: US (occurrence: US)
  Receive Date: 20121022
  Receipt Date: 20121213
  Transmission Date: 20130627
  Serious: No
  Sender: FDA-Public Use
  Company Number: US-TEVA-365741USA

PATIENT
  Age: 45 Year
  Sex: Female
  Weight: 95.34 kg

DRUGS (4)
  1. NUVIGIL [Suspect]
     Indication: SOMNOLENCE
     Dosage: 150 Milligram Daily;
     Route: 048
     Dates: end: 20121018
  2. PROZAC [Concomitant]
     Indication: DEPRESSION
     Dosage: 40 Milligram Daily;
     Route: 048
  3. ABILIFY [Concomitant]
     Indication: DEPRESSION
     Route: 048
  4. ABILIFY [Concomitant]
     Indication: ANXIETY

REACTIONS (3)
  - Urticaria [Recovered/Resolved]
  - Rash pruritic [Recovered/Resolved]
  - Off label use [Unknown]
